FAERS Safety Report 22355432 (Version 1)
Quarter: 2023Q2

REPORT INFORMATION
  Report Type: Spontaneous
  Country: US (occurrence: US)
  Receive Date: 20230523
  Receipt Date: 20230523
  Transmission Date: 20230721
  Serious: Yes (Hospitalization)
  Sender: FDA-Public Use
  Company Number: US-ELI_LILLY_AND_COMPANY-US202305006862

PATIENT
  Age: 70 Year
  Sex: Female

DRUGS (7)
  1. BASAGLAR [Suspect]
     Active Substance: INSULIN GLARGINE
     Indication: Type 2 diabetes mellitus
     Dosage: 25 U, EACH MORNING
     Route: 065
     Dates: start: 202210
  2. BASAGLAR [Suspect]
     Active Substance: INSULIN GLARGINE
     Indication: Type 2 diabetes mellitus
     Dosage: 25 U, EACH MORNING
     Route: 065
     Dates: start: 202210
  3. BASAGLAR [Suspect]
     Active Substance: INSULIN GLARGINE
     Dosage: 25 U, EACH MORNING
     Route: 065
     Dates: start: 202210
  4. BASAGLAR [Suspect]
     Active Substance: INSULIN GLARGINE
     Dosage: 25 U, EACH MORNING
     Route: 065
     Dates: start: 202210
  5. NOVOLOG [Suspect]
     Active Substance: INSULIN ASPART
     Indication: Type 2 diabetes mellitus
     Dosage: 5 U, EACH MORNING
  6. NOVOLOG [Suspect]
     Active Substance: INSULIN ASPART
     Dosage: 5 U, DAILY (AT LUNCH)
  7. NOVOLOG [Suspect]
     Active Substance: INSULIN ASPART
     Dosage: 5 U, EACH EVENING

REACTIONS (9)
  - Seizure [Unknown]
  - Vertigo [Unknown]
  - Fall [Unknown]
  - Abdominal pain upper [Unknown]
  - Glycosylated haemoglobin abnormal [Unknown]
  - Irritability [Unknown]
  - Feeling abnormal [Unknown]
  - Blood glucose fluctuation [Unknown]
  - Blood glucose decreased [Unknown]

NARRATIVE: CASE EVENT DATE: 20221201
